FAERS Safety Report 13651215 (Version 1)
Quarter: 2017Q2

REPORT INFORMATION
  Report Type: Spontaneous
  Country: AU (occurrence: AU)
  Receive Date: 20170614
  Receipt Date: 20170614
  Transmission Date: 20170830
  Serious: Yes (Disabling, Other)
  Sender: FDA-Public Use
  Company Number: AU-INCYTE CORPORATION-2017IN004500

PATIENT

DRUGS (1)
  1. JAKAVI [Suspect]
     Active Substance: RUXOLITINIB
     Indication: MYELOFIBROSIS
     Dosage: 20 MG, BID
     Route: 048
     Dates: start: 20120309, end: 20170410

REACTIONS (4)
  - Concomitant disease aggravated [Unknown]
  - Pyoderma gangrenosum [Recovering/Resolving]
  - Vulval ulceration [Recovering/Resolving]
  - Mouth ulceration [Recovered/Resolved]

NARRATIVE: CASE EVENT DATE: 20170309
